FAERS Safety Report 12846968 (Version 4)
Quarter: 2016Q4

REPORT INFORMATION
  Report Type: Report from Study
  Country: BE (occurrence: BE)
  Receive Date: 20161014
  Receipt Date: 20161110
  Transmission Date: 20170207
  Serious: Yes (Other)
  Sender: FDA-Public Use
  Company Number: PHHY2016BE137926

PATIENT
  Age: 38 Year
  Sex: Female

DRUGS (8)
  1. LDK378 [Suspect]
     Active Substance: CERITINIB
     Indication: LUNG ADENOCARCINOMA STAGE IV
     Dosage: 750 MG, QD
     Route: 048
     Dates: start: 20160721, end: 20161006
  2. PARACETAMOL [Concomitant]
     Active Substance: ACETAMINOPHEN
     Indication: NAUSEA
     Route: 065
  3. PARACETAMOL [Concomitant]
     Active Substance: ACETAMINOPHEN
     Indication: PYREXIA
  4. PARACETAMOL [Concomitant]
     Active Substance: ACETAMINOPHEN
     Indication: PAIN
  5. LITICAN [Concomitant]
     Active Substance: ALIZAPRIDE HYDROCHLORIDE
     Indication: NAUSEA
     Route: 065
  6. LITICAN [Concomitant]
     Active Substance: ALIZAPRIDE HYDROCHLORIDE
     Indication: PYREXIA
  7. LITICAN [Concomitant]
     Active Substance: ALIZAPRIDE HYDROCHLORIDE
     Indication: PAIN
  8. LDK378 [Suspect]
     Active Substance: CERITINIB
     Dosage: 450 MG, QD
     Route: 048
     Dates: start: 20161023, end: 20161102

REACTIONS (14)
  - Pyrexia [Recovered/Resolved]
  - Dyspnoea [Recovering/Resolving]
  - Chest pain [Unknown]
  - Musculoskeletal pain [Unknown]
  - Pyrexia [Unknown]
  - C-reactive protein increased [Unknown]
  - Nausea [Recovered/Resolved]
  - Hypermetabolism [Recovering/Resolving]
  - Asthenia [Recovering/Resolving]
  - Pericarditis [Recovering/Resolving]
  - Appetite disorder [Recovered/Resolved]
  - Pericardial effusion [Recovering/Resolving]
  - Musculoskeletal pain [Recovered/Resolved]
  - Vomiting [Recovered/Resolved]

NARRATIVE: CASE EVENT DATE: 201609
